FAERS Safety Report 4689596-2 (Version None)
Quarter: 2005Q2

REPORT INFORMATION
  Report Type: 
  Country: None (occurrence: None)
  Receive Date: 20050608
  Receipt Date: 20050404
  Transmission Date: 20051028
  Serious: No
  Sender: FDA-Public Use
  Company Number: 2005-BP-05584BP

PATIENT
  Sex: Male

DRUGS (13)
  1. SPIRIVA [Suspect]
     Indication: CHRONIC OBSTRUCTIVE PULMONARY DISEASE
     Dosage: 18 MCG (18 MCG, QD), IH
     Route: 055
     Dates: start: 20041001
  2. DIGOXIN [Concomitant]
  3. FUROSEMIDE [Concomitant]
  4. POTASSIUM CHLORIDE [Concomitant]
  5. LEVOXYL [Concomitant]
  6. DIGOXIN [Concomitant]
  7. AMIODARONE [Concomitant]
  8. PRAZOSIN HCL [Concomitant]
  9. LEVOTHYROXINE [Concomitant]
  10. LOSARTAN POTASSIUM [Concomitant]
  11. COZAAR [Concomitant]
  12. ALBUTEROL [Concomitant]
  13. NITROSTAT [Concomitant]

REACTIONS (1)
  - DRUG INEFFECTIVE [None]
